FAERS Safety Report 9493806 (Version 3)
Quarter: 2013Q3

REPORT INFORMATION
  Report Type: Spontaneous
  Country: FI (occurrence: FI)
  Receive Date: 20130902
  Receipt Date: 20130926
  Transmission Date: 20140515
  Serious: Yes (Hospitalization, Disabling)
  Sender: FDA-Public Use
  Company Number: FI-ROCHE-1267724

PATIENT
  Age: 48 Year
  Sex: Female

DRUGS (1)
  1. TAMIFLU [Suspect]
     Indication: H1N1 INFLUENZA
     Route: 048
     Dates: start: 20130212, end: 20130217

REACTIONS (3)
  - Otitis media [Recovering/Resolving]
  - Deafness [Recovering/Resolving]
  - Otitis externa [Unknown]
